FAERS Safety Report 5734875-0 (Version None)
Quarter: 2008Q2

REPORT INFORMATION
  Report Type: 
  Country: None (occurrence: None)
  Receive Date: 20080512
  Receipt Date: 20080501
  Transmission Date: 20081010
  Serious: Yes (Other)
  Sender: FDA-Public Use
  Company Number: B0361406A

PATIENT
  Age: 37 Year
  Sex: Female

DRUGS (14)
  1. PAROXETINE HCL [Suspect]
     Indication: DEPRESSION
     Route: 065
     Dates: start: 19960902
  2. EFFEXOR [Suspect]
  3. LUSTRAL [Concomitant]
     Dates: start: 19971211
  4. CITALOPRAM HYDROBROMIDE [Concomitant]
     Dates: start: 19980306
  5. PROZAC [Concomitant]
     Dates: start: 19980916
  6. ZISPIN [Concomitant]
  7. FUROSEMIDE [Concomitant]
     Dates: start: 19981101
  8. ORLISTAT [Concomitant]
     Dates: start: 20010101
  9. SIBUTRAMINE [Concomitant]
     Dates: start: 20040301
  10. CHLORPROMAZINE [Concomitant]
     Dates: start: 20040401
  11. METFORMIN HCL [Concomitant]
     Dates: start: 20010101
  12. PIOGLITAZONE [Concomitant]
     Dates: start: 20030101
  13. ROSIGLITAZONE [Concomitant]
     Dates: start: 20051001, end: 20060301
  14. PROPRANOLOL [Concomitant]
     Dates: start: 20051001

REACTIONS (15)
  - AGGRESSION [None]
  - AGITATION [None]
  - ANXIETY [None]
  - CONFUSIONAL STATE [None]
  - DIZZINESS [None]
  - INFLUENZA LIKE ILLNESS [None]
  - INTENTIONAL SELF-INJURY [None]
  - MENTAL IMPAIRMENT [None]
  - NAUSEA [None]
  - PAIN [None]
  - SUICIDAL IDEATION [None]
  - TREMOR [None]
  - URINARY INCONTINENCE [None]
  - VISION BLURRED [None]
  - WITHDRAWAL SYNDROME [None]
